FAERS Safety Report 23196579 (Version 1)
Quarter: 2023Q4

REPORT INFORMATION
  Report Type: Spontaneous
  Country: CH (occurrence: CH)
  Receive Date: 20231117
  Receipt Date: 20231117
  Transmission Date: 20240109
  Serious: Yes (Other)
  Sender: FDA-Public Use
  Company Number: CH-SANDOZ-SDZ2023CH055077

PATIENT
  Age: 57 Year
  Sex: Female

DRUGS (5)
  1. CYTARABINE [Suspect]
     Active Substance: CYTARABINE
     Indication: Acute myeloid leukaemia
     Dosage: UNK
     Route: 037
  2. CYTARABINE [Suspect]
     Active Substance: CYTARABINE
     Dosage: SYSTEMIC(STARTING ON 23-JULY-2021)
     Route: 065
  3. DAUNORUBICIN [Suspect]
     Active Substance: DAUNORUBICIN
     Indication: Acute myeloid leukaemia
     Dosage: SYSTEMIC(STARTING ON 23-JULY-2021)
     Route: 065
  4. HYDROCORTISONE [Suspect]
     Active Substance: HYDROCORTISONE
     Indication: Acute myeloid leukaemia
     Route: 037
  5. METHOTREXATE [Suspect]
     Active Substance: METHOTREXATE
     Indication: Acute myeloid leukaemia
     Route: 037

REACTIONS (1)
  - Eosinophilic myocarditis [Unknown]
